FAERS Safety Report 5550564-X (Version None)
Quarter: 2007Q4

REPORT INFORMATION
  Report Type: 
  Country: None (occurrence: None)
  Receive Date: 20071212
  Receipt Date: 20070504
  Transmission Date: 20080405
  Serious: No
  Sender: FDA-Public Use
  Company Number: US-AMGEN-KDL223370

PATIENT
  Sex: Male

DRUGS (3)
  1. ENBREL [Suspect]
     Indication: REITER'S SYNDROME
     Route: 058
     Dates: start: 20070212, end: 20070228
  2. PLAQUENIL [Concomitant]
     Dates: start: 20000101
  3. METHOTREXATE [Concomitant]
     Route: 048
     Dates: start: 20060101

REACTIONS (3)
  - DRY THROAT [None]
  - INJECTION SITE PAIN [None]
  - MALAISE [None]
